FAERS Safety Report 17101546 (Version 3)
Quarter: 2019Q4

REPORT INFORMATION
  Report Type: Report from Study
  Country: FR (occurrence: FR)
  Receive Date: 20191202
  Receipt Date: 20191212
  Transmission Date: 20200122
  Serious: Yes (Hospitalization)
  Sender: FDA-Public Use
  Company Number: FR-EISAI MEDICAL RESEARCH-EC-2019-066168

PATIENT
  Age: 68 Year
  Sex: Male
  Weight: 80 kg

DRUGS (18)
  1. MIRTAZAPINE. [Concomitant]
     Active Substance: MIRTAZAPINE
     Dates: start: 201904
  2. UROREC [Concomitant]
     Active Substance: SILODOSIN
     Dates: start: 201904
  3. ACETAMINOPHEN. [Concomitant]
     Active Substance: ACETAMINOPHEN
     Dates: start: 20191012
  4. SMECTA [Concomitant]
     Active Substance: MONTMORILLONITE
     Dates: start: 20190821
  5. PEMBROLIZUMAB. [Suspect]
     Active Substance: PEMBROLIZUMAB
     Route: 041
     Dates: start: 20191016, end: 20191016
  6. LENVATINIB [Suspect]
     Active Substance: LENVATINIB
     Route: 048
     Dates: start: 20191107, end: 20191126
  7. OXAZEPAM. [Concomitant]
     Active Substance: OXAZEPAM
     Dates: start: 201904
  8. KARDEGIC [Concomitant]
     Active Substance: ASPIRIN DL-LYSINE
     Dates: start: 201904
  9. MORPHINE [Concomitant]
     Active Substance: MORPHINE
     Dates: start: 201902
  10. PEMBROLIZUMAB. [Suspect]
     Active Substance: PEMBROLIZUMAB
     Indication: HEPATOBILIARY CANCER
     Route: 041
     Dates: start: 20190604, end: 20190925
  11. PERINDOPRIL [Concomitant]
     Active Substance: PERINDOPRIL
     Dates: start: 201904
  12. MAG 2 [Concomitant]
     Active Substance: MAGNESIUM
     Dates: start: 20190925
  13. LENVATINIB [Suspect]
     Active Substance: LENVATINIB
     Indication: HEPATOBILIARY CANCER
     Dosage: FLUCTUATED DOSAGE, STARTING DOSE AT 20 MILLIGRAM
     Route: 048
     Dates: start: 20190604, end: 20191106
  14. ACEBUTOLOL [Concomitant]
     Active Substance: ACEBUTOLOL
     Dates: start: 201904
  15. PANTOPRAZOLE [Concomitant]
     Active Substance: PANTOPRAZOLE
     Dates: start: 20190904
  16. LOPERAMIDE [Concomitant]
     Active Substance: LOPERAMIDE
     Dates: start: 20190815
  17. OXYNORMORO [Concomitant]
     Active Substance: OXYCODONE HYDROCHLORIDE
     Dates: start: 20191016
  18. LYRICA [Concomitant]
     Active Substance: PREGABALIN
     Dates: start: 201810

REACTIONS (3)
  - Diarrhoea [Not Recovered/Not Resolved]
  - Vomiting [Recovered/Resolved]
  - Nausea [Recovered/Resolved]

NARRATIVE: CASE EVENT DATE: 20191117
